FAERS Safety Report 7931696-5 (Version None)
Quarter: 2011Q4

REPORT INFORMATION
  Report Type: 
  Country: None (occurrence: None)
  Receive Date: 20111121
  Receipt Date: 20111114
  Transmission Date: 20120403
  Serious: Yes (Death, Hospitalization)
  Sender: FDA-Public Use
  Company Number: PHHY2011US56071

PATIENT
  Age: 53 Year
  Sex: Male

DRUGS (6)
  1. GLEEVEC [Suspect]
     Indication: CHRONIC MYELOID LEUKAEMIA
     Dosage: 600 MG, QD
  2. GLEEVEC [Suspect]
     Dosage: 500 MG, QD
  3. HYDROXYUREA [Suspect]
     Dosage: 500 MG, UNK
     Dates: start: 20110513
  4. ASPIRIN [Concomitant]
     Dosage: 81 MG, UNK
  5. GLEEVEC [Suspect]
     Dosage: 600 MG, QD
  6. SKIN CANCER MEDICATION [Suspect]
     Dosage: 500 MG, QD
     Route: 065

REACTIONS (6)
  - CONTUSION [None]
  - HEADACHE [None]
  - CEREBRAL HAEMORRHAGE [None]
  - HAEMATEMESIS [None]
  - HYPERTENSION [None]
  - WEIGHT DECREASED [None]
